FAERS Safety Report 5633977-7 (Version None)
Quarter: 2008Q1

REPORT INFORMATION
  Report Type: 
  Country: None (occurrence: None)
  Receive Date: 20080219
  Receipt Date: 20080204
  Transmission Date: 20080703
  Serious: Yes (Disabling)
  Sender: FDA-Public Use
  Company Number: 2008EU000227

PATIENT
  Age: 41 Year
  Sex: Female

DRUGS (2)
  1. VESICARE [Suspect]
     Indication: INCONTINENCE
     Dosage: 5 MG, ORAL; 10 MG, ORAL
     Route: 048
     Dates: start: 20070802, end: 20070823
  2. VESICARE [Suspect]
     Indication: INCONTINENCE
     Dosage: 5 MG, ORAL; 10 MG, ORAL
     Route: 048
     Dates: start: 20070823, end: 20070830

REACTIONS (2)
  - ALOPECIA [None]
  - SKIN REACTION [None]
